FAERS Safety Report 21609591 (Version 1)
Quarter: 2022Q4

REPORT INFORMATION
  Report Type: Spontaneous
  Country: FR (occurrence: FR)
  Receive Date: 20221117
  Receipt Date: 20221117
  Transmission Date: 20230113
  Serious: Yes (Congenital Anomaly)
  Sender: FDA-Public Use
  Company Number: None

PATIENT
  Age: 2 Year
  Sex: Male

DRUGS (2)
  1. BETAMETHASONE [Suspect]
     Active Substance: BETAMETHASONE
     Indication: Threatened labour
     Dosage: 1 DOSAGE FORM, QD
     Route: 064
     Dates: start: 20160927, end: 20160928
  2. ATOSIBAN [Suspect]
     Active Substance: ATOSIBAN
     Indication: Haemorrhage in pregnancy
     Dosage: SEE COMMENTARY
     Route: 064
     Dates: start: 20160927, end: 20161027

REACTIONS (2)
  - Learning disorder [Not Recovered/Not Resolved]
  - Aphasia [Not Recovered/Not Resolved]

NARRATIVE: CASE EVENT DATE: 20190101
